FAERS Safety Report 7237137 (Version 10)
Quarter: 2013Q4

REPORT INFORMATION
  Report Type: Spontaneous
  Country: US (occurrence: US)
  Receive Date: 20100105
  Receipt Date: 20131202
  Transmission Date: 20140711
  Serious: Yes (Hospitalization, Other)
  Sender: FDA-Public Use
  Company Number: US-BAYER-201010002NA

PATIENT
  Age: 18 Year
  Sex: Female
  Weight: 104.55 kg

DRUGS (12)
  1. YAZ [Suspect]
     Indication: PRODUCT USED FOR UNKNOWN INDICATION
     Route: 048
  2. YASMIN [Suspect]
     Indication: PRODUCT USED FOR UNKNOWN INDICATION
     Route: 048
     Dates: start: 200712, end: 2008
  3. NSAID^S [Concomitant]
     Indication: PRODUCT USED FOR UNKNOWN INDICATION
     Route: 065
     Dates: start: 200904
  4. DIURETICS [Concomitant]
     Indication: PRODUCT USED FOR UNKNOWN INDICATION
     Route: 065
     Dates: start: 200903
  5. LABETALOL [Concomitant]
     Indication: BLOOD PRESSURE ABNORMAL
     Dosage: UNK UNK, UNK
     Route: 065
     Dates: start: 200903
  6. LABETALOL [Concomitant]
     Indication: BLOOD PRESSURE ABNORMAL
     Dosage: 200 MG, UNK
  7. LABETALOL [Concomitant]
     Indication: BLOOD PRESSURE ABNORMAL
     Dosage: 300 MG, UNK
  8. ANTIBIOTICS [Concomitant]
     Indication: PRODUCT USED FOR UNKNOWN INDICATION
     Route: 065
  9. FOLIC ACID [Concomitant]
     Indication: PRODUCT USED FOR UNKNOWN INDICATION
     Route: 065
  10. METOPROLOL [Concomitant]
  11. HYDROCHLOROTHIAZIDE [Concomitant]
  12. NAPROSYN [Concomitant]
     Dosage: UNK
     Dates: start: 20090319

REACTIONS (5)
  - Cholecystectomy [Unknown]
  - Myocardial infarction [Unknown]
  - Cholecystitis chronic [None]
  - Oesophagitis [None]
  - Gallbladder cholesterolosis [None]
